FAERS Safety Report 22534905 (Version 2)
Quarter: 2023Q4

REPORT INFORMATION
  Report Type: Spontaneous
  Country: FR (occurrence: FR)
  Receive Date: 20230608
  Receipt Date: 20231025
  Transmission Date: 20240110
  Serious: Yes (Other)
  Sender: FDA-Public Use
  Company Number: FR-AFSSAPS-LM2023000332

PATIENT
  Age: 28 Year
  Sex: Female
  Weight: 50 kg

DRUGS (10)
  1. DROPERIDOL [Suspect]
     Active Substance: DROPERIDOL
     Indication: Procedural nausea
     Dosage: 1.25 MILLIGRAM (TOTAL)
     Route: 042
     Dates: start: 20230515, end: 20230515
  2. KETOPROFEN [Suspect]
     Active Substance: KETOPROFEN
     Indication: Analgesic intervention supportive therapy
     Dosage: 100 MILLIGRAM (TOTAL)
     Route: 065
     Dates: start: 20230515, end: 20230515
  3. ACETAMINOPHEN [Suspect]
     Active Substance: ACETAMINOPHEN
     Indication: Analgesic intervention supportive therapy
     Dosage: 1000 MILLIGRAM (TOTAL)
     Route: 065
     Dates: start: 20230515, end: 20230515
  4. CEFAZOLIN [Suspect]
     Active Substance: CEFAZOLIN
     Indication: Antibiotic prophylaxis
     Dosage: 2 GRAM (TOTAL)
     Route: 042
     Dates: start: 20230515, end: 20230515
  5. DEXAMETHASONE [Suspect]
     Active Substance: DEXAMETHASONE
     Indication: Post procedural inflammation
     Dosage: 8 MILLIGRAM (1 TOTAL)
     Route: 042
     Dates: start: 20230515, end: 20230515
  6. KETAMINE [Suspect]
     Active Substance: KETAMINE
     Indication: General anaesthesia
     Dosage: 20 MILLIGRAM (1 TOTAL)
     Route: 042
     Dates: start: 20230515, end: 20230515
  7. MIDAZOLAM [Suspect]
     Active Substance: MIDAZOLAM
     Indication: General anaesthesia
     Dosage: 1 MILLIGRAM (TOTAL)
     Route: 042
     Dates: start: 20230515, end: 20230515
  8. PHLOROGLUCINOL [Suspect]
     Active Substance: PHLOROGLUCINOL
     Indication: Analgesic intervention supportive therapy
     Dosage: 80 MILLIGRAM (TOTAL)
     Route: 042
     Dates: start: 20230515, end: 20230515
  9. PROPOFOL [Suspect]
     Active Substance: PROPOFOL
     Indication: General anaesthesia
     Dosage: 200 MILLIGRAM (TOTAL)
     Route: 042
     Dates: start: 20230515, end: 20230515
  10. SUFENTANIL [Suspect]
     Active Substance: SUFENTANIL
     Indication: General anaesthesia
     Dosage: 10 MICROGRAM (TOTAL)
     Route: 042
     Dates: start: 20230515, end: 20230515

REACTIONS (1)
  - Lactic acidosis [Recovered/Resolved]

NARRATIVE: CASE EVENT DATE: 20230516
